FAERS Safety Report 18387543 (Version 4)
Quarter: 2021Q1

REPORT INFORMATION
  Report Type: Spontaneous
  Country: US (occurrence: US)
  Receive Date: 20201015
  Receipt Date: 20210204
  Transmission Date: 20210419
  Serious: Yes (Hospitalization, Other)
  Sender: FDA-Public Use
  Company Number: US-PFIZER INC-2020399291

PATIENT
  Age: 75 Year
  Sex: Female

DRUGS (1)
  1. IBRANCE [Suspect]
     Active Substance: PALBOCICLIB
     Dosage: 100 MG, UNK
     Dates: start: 202009

REACTIONS (11)
  - Gastric disorder [Unknown]
  - Pain [Unknown]
  - Ulcer [Unknown]
  - Pelvic fracture [Unknown]
  - Nausea [Unknown]
  - Pain in extremity [Unknown]
  - Feeling hot [Unknown]
  - Gait inability [Unknown]
  - Limb discomfort [Unknown]
  - Dysgeusia [Unknown]
  - White blood cell count decreased [Unknown]
